FAERS Safety Report 15774845 (Version 2)
Quarter: 2019Q1

REPORT INFORMATION
  Report Type: Spontaneous
  Country: US (occurrence: US)
  Receive Date: 20181230
  Receipt Date: 20190330
  Transmission Date: 20190417
  Serious: No
  Sender: FDA-Public Use
  Company Number: US-JNJFOC-20181210145

PATIENT
  Age: 63 Year
  Sex: Female
  Weight: 45.36 kg

DRUGS (1)
  1. SUDAFED [Suspect]
     Active Substance: PSEUDOEPHEDRINE HYDROCHLORIDE
     Indication: NASOPHARYNGITIS
     Dosage: 1 CAPLET (30 MG) IN THE MORNING AND 1 CAPLET, 2 HOURS LATER, TWICE A DAY
     Route: 048
     Dates: start: 20181207, end: 20181207

REACTIONS (8)
  - Loss of personal independence in daily activities [Recovered/Resolved]
  - Inappropriate schedule of product administration [Unknown]
  - Speech disorder [Recovered/Resolved]
  - Disturbance in attention [Recovered/Resolved]
  - Impaired driving ability [Recovered/Resolved]
  - Incorrect dose administered [Unknown]
  - Feeling abnormal [Recovered/Resolved]
  - Dizziness [Recovered/Resolved]

NARRATIVE: CASE EVENT DATE: 20181207
